FAERS Safety Report 5736122-2 (Version None)
Quarter: 2008Q2

REPORT INFORMATION
  Report Type: 
  Country: None (occurrence: None)
  Receive Date: 20080509
  Receipt Date: 20080428
  Transmission Date: 20081010
  Serious: Yes (Hospitalization)
  Sender: FDA-Public Use
  Company Number: 2008AL002570

PATIENT
  Age: 70 Year
  Sex: Male

DRUGS (5)
  1. DIGOXIN [Suspect]
     Indication: CARDIAC DISORDER
     Dosage: 0.25 MG, QD, PO
     Route: 048
     Dates: start: 20070101
  2. ASPIRIN [Concomitant]
  3. ALPHAGAN [Concomitant]
  4. FLOMAX [Concomitant]
  5. XALATAN [Concomitant]

REACTIONS (3)
  - LOSS OF CONSCIOUSNESS [None]
  - OPTIC ISCHAEMIC NEUROPATHY [None]
  - SYNCOPE [None]
